FAERS Safety Report 9734869 (Version 1)
Quarter: 2013Q4

REPORT INFORMATION
  Report Type: Spontaneous
  Country: US (occurrence: US)
  Receive Date: 20131206
  Receipt Date: 20131206
  Transmission Date: 20140711
  Serious: No
  Sender: FDA-Public Use
  Company Number: US-ENDO PHARMACEUTICALS INC.-SPIR20130006

PATIENT
  Sex: Female
  Weight: 63.56 kg

DRUGS (3)
  1. SPIRONOLACTONE TABLETS 25MG [Suspect]
     Indication: HYPERTENSION
     Route: 048
     Dates: start: 2012, end: 2012
  2. SPIRONOLACTONE [Suspect]
     Dosage: 12.5 MG
     Route: 048
     Dates: start: 2012
  3. LISINOPRIL [Concomitant]
     Indication: PRODUCT USED FOR UNKNOWN INDICATION
     Dosage: UNK
     Route: 048

REACTIONS (4)
  - Flushing [Unknown]
  - Fatigue [Not Recovered/Not Resolved]
  - Headache [Unknown]
  - Blood sodium decreased [Unknown]
